FAERS Safety Report 20967287 (Version 1)
Quarter: 2022Q2

REPORT INFORMATION
  Report Type: Spontaneous
  Country: US (occurrence: US)
  Receive Date: 20220616
  Receipt Date: 20220616
  Transmission Date: 20220721
  Serious: Yes (Other)
  Sender: FDA-Public Use
  Company Number: US-PARI RESPIRATORY EQUIPMENT, INC.-2022PAR00033

PATIENT
  Sex: Male

DRUGS (4)
  1. KITABIS PAK [Suspect]
     Active Substance: TOBRAMYCIN
     Indication: Cystic fibrosis
     Dosage: 300 MG (5 ML) VIA NEBULIZER, 2X/DAY USE FOR 28 DAYS EVERY OTHER MONTH
     Dates: start: 20211028
  2. CAYSTON [Suspect]
     Active Substance: AZTREONAM
     Dosage: UNK
  3. PULMOZYME [Suspect]
     Active Substance: DORNASE ALFA
     Dosage: UNK
  4. TOBRAMYCIN [Concomitant]
     Active Substance: TOBRAMYCIN

REACTIONS (1)
  - Lung transplant [Unknown]
